FAERS Safety Report 26150666 (Version 1)
Quarter: 2025Q4

REPORT INFORMATION
  Report Type: Spontaneous
  Country: EU (occurrence: EU)
  Receive Date: 20251212
  Receipt Date: 20251212
  Transmission Date: 20260117
  Serious: Yes (Hospitalization, Other)
  Sender: TEVA
  Company Number: EU-TEVA-VS-3402193

PATIENT
  Age: 70 Year
  Sex: Female

DRUGS (1)
  1. ALENDRONIC ACID [Suspect]
     Active Substance: ALENDRONIC ACID
     Indication: Product used for unknown indication
     Route: 065

REACTIONS (7)
  - Dysphonia [Unknown]
  - Cough [Unknown]
  - Chemical burn of respiratory tract [Unknown]
  - Dyspnoea [Recovering/Resolving]
  - Stridor [Unknown]
  - Dysphagia [Unknown]
  - Choking [Unknown]
